FAERS Safety Report 8781511 (Version 2)
Quarter: 2013Q4

REPORT INFORMATION
  Report Type: Spontaneous
  Country: US (occurrence: US)
  Receive Date: 20120913
  Receipt Date: 20131031
  Transmission Date: 20140711
  Serious: Yes (Other)
  Sender: FDA-Public Use
  Company Number: US-009507513-1209USA003521

PATIENT
  Sex: Male

DRUGS (12)
  1. ISENTRESS [Suspect]
     Route: 048
  2. TRUVADA [Suspect]
     Route: 048
  3. BAKTAR [Concomitant]
  4. PYDOXAL [Concomitant]
  5. LENDORMIN [Concomitant]
  6. TOLEDOMIN [Concomitant]
  7. ISCOTIN [Concomitant]
  8. EBUTOL [Concomitant]
  9. PYRAMIDE [Concomitant]
  10. FOSAMPRENAVIR CALCIUM [Concomitant]
  11. ZIDOVUDINE [Concomitant]
  12. MYCOBUTIN [Concomitant]
     Route: 048

REACTIONS (4)
  - Hallucination, auditory [Unknown]
  - Irritability [Unknown]
  - Drug resistance [Unknown]
  - Anxiety [Unknown]
